FAERS Safety Report 11766450 (Version 1)
Quarter: 2015Q4

REPORT INFORMATION
  Report Type: Spontaneous
  Country: FR (occurrence: FR)
  Receive Date: 20151123
  Receipt Date: 20151123
  Transmission Date: 20160304
  Serious: Yes (Hospitalization)
  Sender: FDA-Public Use
  Company Number: FR-PFIZER INC-2015383356

PATIENT
  Age: 72 Year
  Sex: Female

DRUGS (14)
  1. SETOFILM [Suspect]
     Active Substance: ONDANSETRON
     Indication: PROPHYLAXIS OF NAUSEA AND VOMITING
     Dosage: 1 DF, AS NEEDED
     Route: 048
     Dates: start: 20150827, end: 20150831
  2. XANAX [Concomitant]
     Active Substance: ALPRAZOLAM
  3. IXPRIM [Concomitant]
     Active Substance: ACETAMINOPHEN\TRAMADOL HYDROCHLORIDE
  4. PRIMPERAN [Suspect]
     Active Substance: METOCLOPRAMIDE HYDROCHLORIDE
     Indication: VOMITING
     Dosage: UNK
     Route: 048
     Dates: start: 20150806
  5. ALDACTAZINE [Concomitant]
     Active Substance: ALTHIAZIDE\SPIRONOLACTONE
  6. ENDOXAN /00021101/ [Suspect]
     Active Substance: CYCLOPHOSPHAMIDE
     Indication: INVASIVE DUCTAL BREAST CARCINOMA
     Dosage: UNK, CYCLIC
     Route: 041
     Dates: start: 20150806, end: 20150827
  7. LUMIGAN [Concomitant]
     Active Substance: BIMATOPROST
  8. FARMORUBICINE [Suspect]
     Active Substance: EPIRUBICIN HYDROCHLORIDE
     Indication: INVASIVE DUCTAL BREAST CARCINOMA
     Dosage: UNK, CYCLIC
     Route: 041
     Dates: start: 20150806, end: 20150827
  9. FLUOROURACILE ACCORD [Suspect]
     Active Substance: FLUOROURACIL
     Indication: INVASIVE DUCTAL BREAST CARCINOMA
     Dosage: UNK, CYCLIC
     Route: 041
     Dates: start: 20150806, end: 20150827
  10. PRIMPERAN [Suspect]
     Active Substance: METOCLOPRAMIDE HYDROCHLORIDE
     Dosage: 10 MG, 1X/DAY
     Route: 048
     Dates: start: 20150827, end: 20150904
  11. MONOCRIXO [Concomitant]
     Active Substance: TRAMADOL HYDROCHLORIDE
  12. EMEND [Suspect]
     Active Substance: APREPITANT
     Indication: PROPHYLAXIS OF NAUSEA AND VOMITING
     Dosage: 1 DF, 1X/DAY
     Route: 048
     Dates: start: 20150827, end: 20150830
  13. SOLUPRED /00016201/ [Suspect]
     Active Substance: PREDNISOLONE
     Indication: PROPHYLAXIS OF NAUSEA AND VOMITING
     Dosage: 20 MG, 2X/DAY
     Route: 048
     Dates: start: 20150827, end: 20150830
  14. MOPRAL /00661201/ [Concomitant]
     Active Substance: OMEPRAZOLE SODIUM

REACTIONS (5)
  - Fall [Unknown]
  - Epistaxis [Unknown]
  - Facial bones fracture [Unknown]
  - Colitis [Recovered/Resolved]
  - Presyncope [Unknown]

NARRATIVE: CASE EVENT DATE: 20150904
